FAERS Safety Report 16926708 (Version 1)
Quarter: 2019Q4

REPORT INFORMATION
  Report Type: Spontaneous
  Country: NL (occurrence: NL)
  Receive Date: 20191016
  Receipt Date: 20191016
  Transmission Date: 20200122
  Serious: Yes (Death, Hospitalization, Other)
  Sender: FDA-Public Use
  Company Number: NL-AMNEAL PHARMACEUTICALS-2019-AMRX-02172

PATIENT
  Age: 83 Year
  Sex: Female

DRUGS (2)
  1. RIVAROXABAN [Concomitant]
     Active Substance: RIVAROXABAN
     Indication: ATRIAL FIBRILLATION
     Dosage: UNK
     Route: 065
  2. PILOCARPINE HYDROCHLORIDE. [Suspect]
     Active Substance: PILOCARPINE HYDROCHLORIDE
     Indication: SJOGREN^S SYNDROME
     Dosage: UNK
     Route: 048

REACTIONS (7)
  - Acute kidney injury [Unknown]
  - Hypoxia [Unknown]
  - Abdominal pain [Unknown]
  - Lactic acidosis [Unknown]
  - Withdrawal syndrome [Fatal]
  - Leukocytosis [Unknown]
  - Intestinal obstruction [Recovered/Resolved]
